FAERS Safety Report 18291716 (Version 1)
Quarter: 2020Q3

REPORT INFORMATION
  Report Type: Spontaneous
  Country: DE (occurrence: DE)
  Receive Date: 20200922
  Receipt Date: 20200922
  Transmission Date: 20201103
  Serious: Yes (Hospitalization)
  Sender: FDA-Public Use
  Company Number: DE-B.I. PHARMACEUTICALS,INC./RIDGEFIELD-2020-BI-047987

PATIENT
  Age: 86 Year
  Sex: Male

DRUGS (8)
  1. INDACATEROL [Concomitant]
     Active Substance: INDACATEROL
     Indication: PRODUCT USED FOR UNKNOWN INDICATION
     Dosage: 85|43 UG, 1?0?0?0, METERED DOSE INHALER
     Route: 055
  2. METAMIZOLE [Concomitant]
     Active Substance: METAMIZOLE
     Indication: PRODUCT USED FOR UNKNOWN INDICATION
     Dosage: 500 MG, AS NECESSARY, TABLETS
     Route: 048
  3. DABIGATRAN [Suspect]
     Active Substance: DABIGATRAN
     Indication: PRODUCT USED FOR UNKNOWN INDICATION
     Dosage: 110 MG, 1?0?1?0, TABLETS
     Route: 048
  4. SIMVASTATIN. [Concomitant]
     Active Substance: SIMVASTATIN
     Indication: PRODUCT USED FOR UNKNOWN INDICATION
     Dosage: 40 MG, 0?0?0?1, TABLETS
     Route: 048
  5. BUDESONID [Concomitant]
     Active Substance: BUDESONIDE
     Indication: PRODUCT USED FOR UNKNOWN INDICATION
     Dosage: 0.2 MG, 1?0?1?0, METERED DOSE INHALER
     Route: 055
  6. TORASEMID [Concomitant]
     Active Substance: TORSEMIDE
     Indication: PRODUCT USED FOR UNKNOWN INDICATION
     Dosage: 10 MG, 0.5?0?0?0, TABLETS
     Route: 048
  7. ALLOPURINOL. [Concomitant]
     Active Substance: ALLOPURINOL
     Indication: PRODUCT USED FOR UNKNOWN INDICATION
     Dosage: 300 MG, 0.5?0?0?0, TABLETS
     Route: 048
  8. METOPROLOL. [Concomitant]
     Active Substance: METOPROLOL
     Indication: PRODUCT USED FOR UNKNOWN INDICATION
     Dosage: 95 MG, 0.5?0?0.5?0, PROLONGED?RELEASE TABLETS
     Route: 048

REACTIONS (6)
  - Haematochezia [Recovering/Resolving]
  - Confusional state [Recovering/Resolving]
  - Lower gastrointestinal haemorrhage [Recovering/Resolving]
  - General physical health deterioration [Recovering/Resolving]
  - Internal haemorrhage [Recovering/Resolving]
  - Dehydration [Recovering/Resolving]
